FAERS Safety Report 11090731 (Version 1)
Quarter: 2015Q2

REPORT INFORMATION
  Report Type: Report from Study
  Country: JP (occurrence: JP)
  Receive Date: 20150505
  Receipt Date: 20150505
  Transmission Date: 20150821
  Serious: Yes (Hospitalization)
  Sender: FDA-Public Use
  Company Number: JP-ASTRAZENECA-2013SE11802

PATIENT
  Age: 78 Year
  Sex: Male

DRUGS (27)
  1. JANUVIA [Suspect]
     Active Substance: SITAGLIPTIN PHOSPHATE
     Indication: DIABETES MELLITUS
     Route: 048
     Dates: start: 20120323, end: 20130205
  2. CORINAEL CR [Suspect]
     Active Substance: NIFEDIPINE
     Indication: HYPERTENSION
     Route: 048
     Dates: start: 20130511, end: 20130514
  3. OLOPATADINE HYDROCHLORIDE. [Concomitant]
     Active Substance: OLOPATADINE HYDROCHLORIDE
     Route: 048
     Dates: start: 20130215
  4. HIRUDOID [Concomitant]
     Active Substance: GLYCOSAMINOGLYCANS
     Dosage: OPTIMAL DOSE
     Route: 065
     Dates: start: 20130308
  5. FORSENID [Concomitant]
     Route: 048
     Dates: start: 20141017
  6. AROMATIC CASTOR OIL [Concomitant]
     Route: 065
     Dates: start: 20141017
  7. ZESULAN [Concomitant]
     Active Substance: MEQUITAZINE
     Route: 048
     Dates: start: 20130215, end: 20130321
  8. WHITE PETROLATUM [Concomitant]
     Active Substance: PETROLATUM
     Dosage: OPTIMAL DOSE
     Route: 065
     Dates: start: 20130215
  9. CEFZON [Concomitant]
     Active Substance: CEFDINIR
     Route: 048
     Dates: start: 20130409, end: 20130412
  10. CRESTOR [Suspect]
     Active Substance: ROSUVASTATIN CALCIUM
     Indication: HYPERCHOLESTEROLAEMIA
     Route: 048
     Dates: start: 20130726
  11. VOGLIBOSE OD [Suspect]
     Active Substance: VOGLIBOSE
     Indication: DIABETES MELLITUS
     Route: 048
     Dates: start: 20130816
  12. ARGAMATE [Concomitant]
     Active Substance: POLYSTYRENE
     Route: 065
     Dates: start: 20121116, end: 20130111
  13. JANUVIA [Suspect]
     Active Substance: SITAGLIPTIN PHOSPHATE
     Indication: DIABETES MELLITUS
     Route: 048
     Dates: start: 20130628
  14. UNISIA [Concomitant]
     Active Substance: AMLODIPINE BESYLATE\CANDESARTAN CILEXETIL
     Indication: HYPERTENSION
     Route: 048
     Dates: start: 20130603
  15. RESTAMIN [Concomitant]
     Active Substance: DIPHENHYDRAMINE
     Route: 062
     Dates: start: 20130205, end: 20130501
  16. CORINAEL CR [Suspect]
     Active Substance: NIFEDIPINE
     Indication: HYPERTENSION
     Route: 048
     Dates: start: 20120104, end: 20130205
  17. DIOVAN [Suspect]
     Active Substance: VALSARTAN
     Indication: HYPERTENSION
     Route: 048
     Dates: start: 20120427, end: 20130205
  18. MAGMITT [Concomitant]
     Active Substance: MAGNESIUM OXIDE
     Route: 048
     Dates: start: 20130430
  19. RINDERON V [Concomitant]
     Active Substance: BETAMETHASONE VALERATE
     Dosage: OPTIMAL DOSE
     Route: 062
     Dates: start: 20140214
  20. ALLELOCK [Concomitant]
     Active Substance: OLOPATADINE HYDROCHLORIDE
     Route: 048
     Dates: start: 20130215
  21. INFLUENZA HA VACCINE [Concomitant]
     Active Substance: INFLUENZA VIRUS VACCINE
     Dosage: DAILY
     Route: 065
     Dates: start: 20121026, end: 20121026
  22. MYSER [Concomitant]
     Active Substance: DIFLUPREDNATE
     Route: 062
     Dates: start: 20130215, end: 20140213
  23. CRESTOR [Suspect]
     Active Substance: ROSUVASTATIN CALCIUM
     Indication: HYPERCHOLESTEROLAEMIA
     Dosage: SUSPENDED FROM 01-JAN-2013 TO 10-JAN-2013
     Route: 048
     Dates: start: 20120831, end: 20130205
  24. VOGLIBOSE OD [Suspect]
     Active Substance: VOGLIBOSE
     Indication: DIABETES MELLITUS
     Route: 048
     Dates: start: 20120210, end: 20130205
  25. LAXOBERON [Concomitant]
     Active Substance: SODIUM PICOSULFATE
     Route: 065
     Dates: start: 20120713, end: 20130205
  26. LAXOBERON [Concomitant]
     Active Substance: SODIUM PICOSULFATE
     Route: 065
     Dates: start: 20130430, end: 20141016
  27. ALLEGRA [Concomitant]
     Active Substance: FEXOFENADINE HYDROCHLORIDE
     Route: 048
     Dates: start: 20130205, end: 20130215

REACTIONS (3)
  - Rash [Not Recovered/Not Resolved]
  - Coronary artery stenosis [Recovering/Resolving]
  - Hypertension [Not Recovered/Not Resolved]

NARRATIVE: CASE EVENT DATE: 20130111
